FAERS Safety Report 17929900 (Version 1)
Quarter: 2020Q2

REPORT INFORMATION
  Report Type: Report from Study
  Country: CA (occurrence: CA)
  Receive Date: 20200623
  Receipt Date: 20200623
  Transmission Date: 20200714
  Serious: Yes (Hospitalization, Other)
  Sender: FDA-Public Use
  Company Number: CA-ACCORD-186406

PATIENT
  Age: 75 Year
  Sex: Female

DRUGS (13)
  1. FOLIC ACID. [Concomitant]
     Active Substance: FOLIC ACID
  2. GEMCITABINE/GEMCITABINE HYDROCHLORIDE [Suspect]
     Active Substance: GEMCITABINE\GEMCITABINE HYDROCHLORIDE
     Indication: PRODUCT USED FOR UNKNOWN INDICATION
  3. AMLODIPINE [Concomitant]
     Active Substance: AMLODIPINE BESYLATE
  4. DOCUSATE/DOCUSATE CALCIUM/DOCUSATE POTASSIUM/DOCUSATE SODIUM [Concomitant]
     Active Substance: DOCUSATE
  5. OMEPRAZOLE. [Concomitant]
     Active Substance: OMEPRAZOLE
  6. TERAZOSIN [Concomitant]
     Active Substance: TERAZOSIN HYDROCHLORIDE
  7. METFORMIN [Concomitant]
     Active Substance: METFORMIN HYDROCHLORIDE
  8. MONTELUKAST [Concomitant]
     Active Substance: MONTELUKAST SODIUM
  9. CYANOCOBALAMIN. [Concomitant]
     Active Substance: CYANOCOBALAMIN
  10. BEVACIZUMAB. [Suspect]
     Active Substance: BEVACIZUMAB
     Indication: OVARIAN CANCER
     Route: 042
  11. DOXORUBICIN [Concomitant]
     Active Substance: DOXORUBICIN
  12. EZETIMIBE. [Concomitant]
     Active Substance: EZETIMIBE
  13. SERTRALINE [Concomitant]
     Active Substance: SERTRALINE HYDROCHLORIDE

REACTIONS (22)
  - Red blood cell count decreased [Not Recovered/Not Resolved]
  - Urine protein/creatinine ratio increased [Not Recovered/Not Resolved]
  - General physical health deterioration [Not Recovered/Not Resolved]
  - Alanine aminotransferase increased [Not Recovered/Not Resolved]
  - Aspartate aminotransferase increased [Not Recovered/Not Resolved]
  - Haemoglobin decreased [Not Recovered/Not Resolved]
  - Lymphocyte count decreased [Not Recovered/Not Resolved]
  - Protein urine present [Not Recovered/Not Resolved]
  - Pyrexia [Not Recovered/Not Resolved]
  - Blood creatinine increased [Not Recovered/Not Resolved]
  - Platelet count decreased [Not Recovered/Not Resolved]
  - Red cell distribution width increased [Not Recovered/Not Resolved]
  - White blood cell count decreased [Not Recovered/Not Resolved]
  - Blood magnesium decreased [Not Recovered/Not Resolved]
  - Eosinophil count decreased [Not Recovered/Not Resolved]
  - Haematocrit decreased [Not Recovered/Not Resolved]
  - Proteinuria [Not Recovered/Not Resolved]
  - Mean cell volume increased [Not Recovered/Not Resolved]
  - Renal failure [Not Recovered/Not Resolved]
  - Mean cell haemoglobin concentration decreased [Not Recovered/Not Resolved]
  - Neutrophil count decreased [Not Recovered/Not Resolved]
  - Oxygen saturation decreased [Not Recovered/Not Resolved]
